FAERS Safety Report 6640086-7 (Version None)
Quarter: 2010Q1

REPORT INFORMATION
  Report Type: 
  Country: None (occurrence: None)
  Receive Date: 20100315
  Receipt Date: 20100226
  Transmission Date: 20100710
  Serious: Yes (Death)
  Sender: FDA-Public Use
  Company Number: AVE_01619_2010

PATIENT
  Age: 46 Year
  Sex: Male
  Weight: 73 kg

DRUGS (6)
  1. NICOTINE (NICOTINE)              7 MG [Suspect]
     Indication: DRUG USE FOR UNKNOWN INDICATION
     Dosage: (175 MG 1X, [NOT THE PRESCRIBED AMOUNT] TRANSDERMAL)
     Route: 062
  2. NICOTINE [Suspect]
     Indication: DRUG USE FOR UNKNOWN INDICATION
     Dosage: (DF ORAL)
     Route: 048
  3. TRAMADOL HCL [Suspect]
     Indication: DRUG USE FOR UNKNOWN INDICATION
     Dosage: (DF)
  4. DIPHENHYDRAMINE HCL [Concomitant]
  5. PARACETAMOL [Concomitant]
  6. CAFFEINE [Concomitant]

REACTIONS (18)
  - ARTERIOSCLEROSIS CORONARY ARTERY [None]
  - BLADDER DILATATION [None]
  - BRAIN OEDEMA [None]
  - CARDIAC FAILURE [None]
  - COMPLETED SUICIDE [None]
  - CONJUNCTIVAL HAEMORRHAGE [None]
  - DEPRESSED LEVEL OF CONSCIOUSNESS [None]
  - DRUG TOXICITY [None]
  - HYPERAEMIA [None]
  - MYOCARDIAL INFARCTION [None]
  - MYOCARDIAL ISCHAEMIA [None]
  - PLEURAL HAEMORRHAGE [None]
  - POISONING [None]
  - POTENTIATING DRUG INTERACTION [None]
  - PULMONARY CONGESTION [None]
  - PULMONARY OEDEMA [None]
  - RESPIRATORY FAILURE [None]
  - VISCERAL CONGESTION [None]
